FAERS Safety Report 4872475-5 (Version None)
Quarter: 2005Q4

REPORT INFORMATION
  Report Type: 
  Country: None (occurrence: None)
  Receive Date: 20051201
  Receipt Date: 20050802
  Transmission Date: 20060501
  Serious: No
  Sender: FDA-Public Use
  Company Number: 2005PV000830

PATIENT
  Age: 71 Year
  Sex: Female
  Weight: 60.782 kg

DRUGS (4)
  1. BYETTA [Suspect]
     Dosage: 5 MCG; BID; SC
     Route: 058
     Dates: start: 20050802
  2. GLUCOPHAGE [Concomitant]
  3. ZOCOR [Concomitant]
  4. NOVOLOG [Concomitant]

REACTIONS (3)
  - DEPRESSED LEVEL OF CONSCIOUSNESS [None]
  - HEADACHE [None]
  - NAUSEA [None]
